FAERS Safety Report 16332918 (Version 1)
Quarter: 2019Q2

REPORT INFORMATION
  Report Type: Spontaneous
  Country: US (occurrence: US)
  Receive Date: 20190520
  Receipt Date: 20190520
  Transmission Date: 20190711
  Serious: Yes (Hospitalization, Other)
  Sender: FDA-Public Use
  Company Number: US-MYLANLABS-2019M1047063

PATIENT
  Age: 56 Year
  Sex: Female

DRUGS (3)
  1. SULPHAMETHOXAZOLE/TRIMETHOPRIM [Suspect]
     Active Substance: SULFAMETHOXAZOLE\TRIMETHOPRIM
     Indication: GROIN ABSCESS
     Route: 065
  2. BISMUTH TRIBROMOPHENATE [Concomitant]
     Active Substance: BISMUTH TRIBROMOPHENATE
     Indication: PRODUCT USED FOR UNKNOWN INDICATION
     Route: 061
  3. MEPILEX AG [Suspect]
     Active Substance: ACTIVATED CHARCOAL\SILVER SULFATE
     Indication: WOUND TREATMENT
     Dosage: TOTAL OF 8000 CM2
     Route: 061

REACTIONS (2)
  - Toxic epidermal necrolysis [Recovered/Resolved]
  - Sepsis [Recovered/Resolved]
